FAERS Safety Report 6595486-0 (Version None)
Quarter: 2010Q1

REPORT INFORMATION
  Report Type: 
  Country: None (occurrence: None)
  Receive Date: 20100222
  Receipt Date: 20100222
  Transmission Date: 20100710
  Serious: Yes (Other)
  Sender: FDA-Public Use
  Company Number: None

PATIENT
  Age: 70 Year
  Sex: Female
  Weight: 78.4723 kg

DRUGS (10)
  1. AVELOX [Suspect]
     Indication: BACTERIAL INFECTION
     Dosage: 400 MG 1X QD ORAL
     Route: 048
     Dates: start: 20091120
  2. AVELOX [Suspect]
     Indication: INFLUENZA
     Dosage: 400 MG 1X QD ORAL
     Route: 048
     Dates: start: 20091120
  3. AVELOX [Suspect]
     Indication: BACTERIAL INFECTION
     Dosage: 400 MG 1X QD ORAL
     Route: 048
     Dates: start: 20091121
  4. AVELOX [Suspect]
     Indication: INFLUENZA
     Dosage: 400 MG 1X QD ORAL
     Route: 048
     Dates: start: 20091121
  5. AVELOX [Suspect]
     Indication: BACTERIAL INFECTION
     Dosage: 400 MG 1X QD ORAL
     Route: 048
     Dates: start: 20091122
  6. AVELOX [Suspect]
     Indication: INFLUENZA
     Dosage: 400 MG 1X QD ORAL
     Route: 048
     Dates: start: 20091122
  7. AVELOX [Suspect]
     Indication: BACTERIAL INFECTION
     Dosage: 400 MG 1X QD ORAL
     Route: 048
     Dates: start: 20091123
  8. AVELOX [Suspect]
     Indication: INFLUENZA
     Dosage: 400 MG 1X QD ORAL
     Route: 048
     Dates: start: 20091123
  9. AVELOX [Suspect]
     Indication: BACTERIAL INFECTION
     Dosage: 400 MG 1X QD ORAL
     Route: 048
     Dates: start: 20091124
  10. AVELOX [Suspect]
     Indication: INFLUENZA
     Dosage: 400 MG 1X QD ORAL
     Route: 048
     Dates: start: 20091124

REACTIONS (6)
  - BEDRIDDEN [None]
  - CONFUSIONAL STATE [None]
  - HALLUCINATION [None]
  - HYPOAESTHESIA [None]
  - JOINT DISLOCATION [None]
  - OEDEMA PERIPHERAL [None]
